FAERS Safety Report 11785682 (Version 3)
Quarter: 2016Q1

REPORT INFORMATION
  Report Type: Spontaneous
  Country: GB (occurrence: GB)
  Receive Date: 20151130
  Receipt Date: 20160323
  Transmission Date: 20160525
  Serious: Yes (Death, Other)
  Sender: FDA-Public Use
  Company Number: GB-BRISTOL-MYERS SQUIBB COMPANY-BMS-2015-080996

PATIENT
  Age: 44 Year
  Sex: Male
  Weight: 80 kg

DRUGS (9)
  1. NUROFEN PLUS [Suspect]
     Active Substance: CODEINE PHOSPHATE\IBUPROFEN
     Indication: PAIN
     Dosage: UNK
     Route: 048
     Dates: end: 20150609
  2. VENLAFAXINE [Suspect]
     Active Substance: VENLAFAXINE HYDROCHLORIDE
     Indication: DEPRESSION
     Dosage: 225 MG, QD
     Route: 048
     Dates: start: 20150609, end: 20150609
  3. ZOPICLONE [Suspect]
     Active Substance: ZOPICLONE
     Indication: INSOMNIA
     Dosage: 3.75 MG, QD
     Route: 048
     Dates: end: 20150609
  4. QUETIAPINE [Suspect]
     Active Substance: QUETIAPINE
     Indication: PSYCHOTIC DISORDER
     Dosage: 150 MG, UNK
     Route: 048
     Dates: start: 20150609, end: 20150609
  5. SITAGLIPTIN [Suspect]
     Active Substance: SITAGLIPTIN
     Indication: DIABETES MELLITUS
     Dosage: 100 MG, UNK
     Route: 048
     Dates: end: 20150609
  6. MIRTAZAPINE. [Suspect]
     Active Substance: MIRTAZAPINE
     Indication: DEPRESSION
     Dosage: 45 MG, UNK
     Route: 048
     Dates: end: 20150609
  7. METFORMIN HYDROCHLORIDE. [Suspect]
     Active Substance: METFORMIN HYDROCHLORIDE
     Indication: HYPOGLYCAEMIA
     Dosage: 2 G, QD
     Route: 048
     Dates: end: 20150609
  8. GLIMEPIRIDE. [Suspect]
     Active Substance: GLIMEPIRIDE
     Indication: PRODUCT USED FOR UNKNOWN INDICATION
     Dosage: 2 MG, UNK
     Route: 048
     Dates: start: 20150609
  9. RISPERIDONE. [Suspect]
     Active Substance: RISPERIDONE
     Indication: PRODUCT USED FOR UNKNOWN INDICATION
     Dosage: 2 MG, BID
     Route: 048
     Dates: start: 20150609, end: 20150609

REACTIONS (2)
  - Metabolic acidosis [Fatal]
  - Overdose [Fatal]
